FAERS Safety Report 4622989-8 (Version None)
Quarter: 2005Q1

REPORT INFORMATION
  Report Type: 
  Country: None (occurrence: None)
  Receive Date: 20050329
  Receipt Date: 92000502
  Transmission Date: 20050727
  Serious: Yes (Hospitalization)
  Sender: FDA-Public Use
  Company Number: 36006

PATIENT
  Age: 70 Year
  Sex: Female

DRUGS (12)
  1. AMIODARONE [Suspect]
     Dosage: 100 MG; PO
     Route: 048
     Dates: start: 20030201, end: 20030501
  2. DIAZEPAM [Concomitant]
  3. PERINDOPRIL [Concomitant]
  4. SPIRONOLACTONE [Concomitant]
  5. INSULIN LISPRO [Concomitant]
  6. INSULIN HUMAN [Concomitant]
  7. ENOXAPARIN SODIUM [Concomitant]
  8. SIMVASTATIN [Concomitant]
  9. THYROXINE  SODIUM [Concomitant]
  10. FRUSEMIDE [Concomitant]
  11. ACETYL SALICYLIC ACID USP BAT [Concomitant]
  12. LANSOPRAZOLE [Concomitant]

REACTIONS (3)
  - DERMATITIS EXFOLIATIVE [None]
  - ECZEMA [None]
  - MALAISE [None]
